FAERS Safety Report 9025369 (Version 1)
Quarter: 2012Q4

REPORT INFORMATION
  Report Type: 
  Country: US (occurrence: US)
  Receive Date: 20121211
  Receipt Date: 20121211
  Transmission Date: 20130627
  Serious: Yes (Other)
  Sender: FDA-Public Use
  Company Number: PHHY2012US113212

PATIENT

DRUGS (1)
  1. ZOLEDRONIC ACID [Suspect]

REACTIONS (1)
  - Renal tubular necrosis [Unknown]
